APPROVED DRUG PRODUCT: FOSAPREPITANT DIMEGLUMINE
Active Ingredient: FOSAPREPITANT DIMEGLUMINE
Strength: EQ 150MG BASE/VIAL
Dosage Form/Route: POWDER;INTRAVENOUS
Application: A212143 | Product #001 | TE Code: AP
Applicant: CHIA TAI TIANQING PHARMACEUTICAL GROUP CO LTD
Approved: Mar 3, 2021 | RLD: No | RS: No | Type: RX